FAERS Safety Report 20755007 (Version 1)
Quarter: 2022Q2

REPORT INFORMATION
  Report Type: Spontaneous
  Country: US (occurrence: US)
  Receive Date: 20220427
  Receipt Date: 20220427
  Transmission Date: 20220721
  Serious: Yes (Other)
  Sender: FDA-Public Use
  Company Number: US-BRISTOL-MYERS SQUIBB COMPANY-2022-021563

PATIENT
  Sex: Female

DRUGS (1)
  1. REVLIMID [Suspect]
     Active Substance: LENALIDOMIDE
     Indication: Plasma cell myeloma
     Dosage: ONE CAPSULE BY MOUTH DAILY ON DAYS 1 THROUGH 21 EVERY 28 DAYS
     Route: 048
     Dates: start: 20220128

REACTIONS (8)
  - Diarrhoea [Unknown]
  - White blood cell count decreased [Unknown]
  - Muscle spasms [Unknown]
  - Pain [Unknown]
  - Neuropathy peripheral [Unknown]
  - Dry skin [Unknown]
  - Nerve injury [Unknown]
  - Product dose omission issue [Unknown]
